FAERS Safety Report 5568677-5 (Version None)
Quarter: 2007Q4

REPORT INFORMATION
  Report Type: 
  Country: None (occurrence: None)
  Receive Date: 20071218
  Receipt Date: 20070330
  Transmission Date: 20080405
  Serious: Yes (Life-Threatening, Hospitalization, Other)
  Sender: FDA-Public Use
  Company Number: 2007SP005947

PATIENT
  Age: 63 Year
  Sex: Male
  Weight: 55 kg

DRUGS (6)
  1. TEMODAL [Suspect]
     Indication: GLIOBLASTOMA MULTIFORME
     Dosage: 150 MG/M2;QD;PO
     Route: 048
     Dates: start: 20061027, end: 20061031
  2. TEMODAL [Suspect]
     Indication: GLIOBLASTOMA MULTIFORME
     Dosage: 150 MG/M2;QD;PO
     Route: 048
     Dates: start: 20061124, end: 20061128
  3. RINDERON [Concomitant]
  4. ZANTAC [Concomitant]
  5. TAGAMET [Concomitant]
  6. AMLODIN [Concomitant]

REACTIONS (6)
  - BLOOD ALBUMIN DECREASED [None]
  - LIVER DISORDER [None]
  - NAUSEA [None]
  - PLATELET COUNT DECREASED [None]
  - SEPSIS [None]
  - VOMITING [None]
